FAERS Safety Report 5633184-8 (Version None)
Quarter: 2008Q1

REPORT INFORMATION
  Report Type: 
  Country: None (occurrence: None)
  Receive Date: 20080215
  Receipt Date: 20080201
  Transmission Date: 20080703
  Serious: Yes (Death)
  Sender: FDA-Public Use
  Company Number: 000066

PATIENT
  Age: 63 Year
  Sex: Male

DRUGS (9)
  1. PLETAL [Suspect]
     Indication: LACUNAR INFARCTION
     Dosage: 100MG, BID; 50 MG, BID; ORAL
     Route: 048
     Dates: start: 20041005, end: 20050601
  2. PLETAL [Suspect]
     Indication: LACUNAR INFARCTION
     Dosage: 100MG, BID; 50 MG, BID; ORAL
     Route: 048
     Dates: start: 20050602, end: 20060726
  3. PLETAL [Suspect]
     Indication: LACUNAR INFARCTION
     Dosage: 100MG, BID; 50 MG, BID; ORAL
     Route: 048
     Dates: start: 20060727, end: 20071201
  4. XANBON (OZAGREL SODIUM) [Concomitant]
  5. RADICUT (EDARAVONE) [Concomitant]
  6. HUMALOG (INSULIN LISPRO (GENETICAL RECOMBINATION)) [Concomitant]
  7. MICARDIS [Concomitant]
  8. DOXAZOSIN MESYLATE [Concomitant]
  9. LISINOPRIL [Concomitant]

REACTIONS (4)
  - DIABETIC NEPHROPATHY [None]
  - DIARRHOEA [None]
  - HYPERTENSIVE NEPHROPATHY [None]
  - OESOPHAGEAL CARCINOMA [None]
